FAERS Safety Report 18952830 (Version 1)
Quarter: 2021Q1

REPORT INFORMATION
  Report Type: Spontaneous
  Country: US (occurrence: US)
  Receive Date: 20210226
  Receipt Date: 20210226
  Transmission Date: 20210420
  Serious: Yes (Other)
  Sender: FDA-Public Use
  Company Number: None

PATIENT
  Age: 70 Year
  Sex: Male
  Weight: 74.25 kg

DRUGS (3)
  1. CRESTOR [Concomitant]
     Active Substance: ROSUVASTATIN CALCIUM
  2. PRILOSEC [Concomitant]
     Active Substance: OMEPRAZOLE MAGNESIUM
  3. LEXISCAN [Suspect]
     Active Substance: REGADENOSON
     Indication: VASODILATATION
     Route: 042
     Dates: start: 20210219, end: 20210219

REACTIONS (2)
  - Hyperaesthesia [None]
  - Headache [None]

NARRATIVE: CASE EVENT DATE: 20210219
